FAERS Safety Report 5141755-0 (Version None)
Quarter: 2006Q4

REPORT INFORMATION
  Report Type: 
  Country: None (occurrence: None)
  Receive Date: 20061101
  Receipt Date: 20060602
  Transmission Date: 20070319
  Serious: Yes (Hospitalization, Other)
  Sender: FDA-Public Use
  Company Number: GB-ABBOTT-06P-167-0335179-00

PATIENT
  Sex: Male
  Weight: 69.8 kg

DRUGS (4)
  1. ERYTHROMYCIN STEARATE [Suspect]
     Indication: ROSACEA
     Route: 048
     Dates: start: 19940101, end: 20060526
  2. FINASTERIDE [Concomitant]
     Indication: BENIGN PROSTATIC HYPERPLASIA
     Route: 048
     Dates: start: 20030101
  3. BETAHISTINE [Concomitant]
     Indication: LABYRINTHITIS
     Route: 048
     Dates: start: 20000101
  4. SALBUTAMOL W/IPRATROPIUM [Concomitant]
     Indication: CHRONIC OBSTRUCTIVE PULMONARY DISEASE
     Route: 055
     Dates: start: 20020101

REACTIONS (4)
  - CHOKING [None]
  - COUGH [None]
  - LOWER RESPIRATORY TRACT INFECTION [None]
  - LUNG DISORDER [None]
